FAERS Safety Report 23788370 (Version 1)
Quarter: 2024Q2

REPORT INFORMATION
  Report Type: Spontaneous
  Country: CN (occurrence: CN)
  Receive Date: 20240426
  Receipt Date: 20240426
  Transmission Date: 20240716
  Serious: Yes (Other)
  Sender: FDA-Public Use
  Company Number: CN-PFIZER INC-PV202400054192

PATIENT
  Age: 28 Year
  Sex: Female
  Weight: 64 kg

DRUGS (3)
  1. CARBOPROST TROMETHAMINE [Suspect]
     Active Substance: CARBOPROST TROMETHAMINE
     Indication: Postpartum haemorrhage
     Dosage: 1 ML, 1X/DAY
     Route: 030
     Dates: start: 20240422, end: 20240422
  2. MOTHERWORT [Concomitant]
     Indication: Haemorrhage
     Dosage: 2 ML, 1X/DAY
     Route: 030
     Dates: start: 20240422, end: 20240422
  3. OXYTOCIN [Concomitant]
     Active Substance: OXYTOCIN
     Indication: Haemorrhage
     Dosage: 2 ML, 1X/DAY
     Route: 041
     Dates: start: 20240422, end: 20240422

REACTIONS (5)
  - Palpitations [Recovering/Resolving]
  - Chest discomfort [Recovering/Resolving]
  - Tachypnoea [Recovering/Resolving]
  - Erythema [Recovering/Resolving]
  - Body temperature increased [Unknown]

NARRATIVE: CASE EVENT DATE: 20240422
